FAERS Safety Report 25123369 (Version 1)
Quarter: 2025Q1

REPORT INFORMATION
  Report Type: Spontaneous
  Country: US (occurrence: None)
  Receive Date: 20250325
  Receipt Date: 20250325
  Transmission Date: 20250409
  Serious: Yes (Other)
  Sender: FDA-CTU
  Company Number: None

PATIENT
  Age: 32 Year
  Sex: Female
  Weight: 52.1 kg

DRUGS (1)
  1. XDEMVY [Suspect]
     Active Substance: LOTILANER
     Indication: Demodex blepharitis
     Dosage: 1 ML  1 DROP IN BOTH EYES BID OPHTHALMIC
     Route: 047
     Dates: start: 20250122, end: 20250201

REACTIONS (1)
  - Eye irritation [None]

NARRATIVE: CASE EVENT DATE: 20250201
